FAERS Safety Report 14061078 (Version 1)
Quarter: 2017Q4

REPORT INFORMATION
  Report Type: Spontaneous
  Country: US (occurrence: US)
  Receive Date: 20171008
  Receipt Date: 20171008
  Transmission Date: 20180321
  Serious: No
  Sender: FDA-Public Use
  Company Number: PHEH2017US031250

PATIENT
  Sex: Female

DRUGS (1)
  1. OMNITROPE [Suspect]
     Active Substance: SOMATROPIN
     Indication: PRODUCT USED FOR UNKNOWN INDICATION
     Dosage: 2.2 MG, QD
     Route: 065
     Dates: start: 20140210

REACTIONS (4)
  - Injection site erythema [Recovered/Resolved]
  - Injection site swelling [Recovered/Resolved]
  - Chest discomfort [Recovered/Resolved]
  - Injection site rash [Recovered/Resolved]
